FAERS Safety Report 22208519 (Version 1)
Quarter: 2023Q2

REPORT INFORMATION
  Report Type: Spontaneous
  Country: US (occurrence: None)
  Receive Date: 20230413
  Receipt Date: 20230413
  Transmission Date: 20230721
  Serious: No
  Sender: FDA-Public Use
  Company Number: 2023A075259

PATIENT
  Sex: Female

DRUGS (2)
  1. TAGRISSO [Suspect]
     Active Substance: OSIMERTINIB
     Indication: Lung carcinoma cell type unspecified stage 0
     Route: 048
  2. JAKAFI [Suspect]
     Active Substance: RUXOLITINIB
     Indication: Polycythaemia vera
     Route: 048
     Dates: start: 201611

REACTIONS (4)
  - Fatigue [Unknown]
  - Asthenia [Unknown]
  - Decreased activity [Unknown]
  - Hypersensitivity [Unknown]
